FAERS Safety Report 8196456-1 (Version None)
Quarter: 2012Q1

REPORT INFORMATION
  Report Type: 
  Country: None (occurrence: None)
  Receive Date: 20120309
  Receipt Date: 20120302
  Transmission Date: 20120608
  Serious: Yes (Other)
  Sender: FDA-Public Use
  Company Number: US-BAYER-2011-074765

PATIENT
  Age: 27 Year
  Sex: Female
  Weight: 80.726 kg

DRUGS (9)
  1. CEPHALEXIN [Concomitant]
  2. YASMIN [Suspect]
     Indication: CONTRACEPTION
     Dosage: UNK
     Dates: start: 20050601, end: 20070101
  3. IUD NOS [Concomitant]
     Route: 015
  4. YAZ [Suspect]
     Indication: CONTRACEPTION
     Dosage: UNK
     Dates: start: 20050601, end: 20070101
  5. SYNTHROID [Concomitant]
  6. PREDNISONE [Concomitant]
  7. ACIPHEX [Concomitant]
  8. CEFZIL [Concomitant]
  9. PROTONIX [Concomitant]

REACTIONS (4)
  - DEEP VEIN THROMBOSIS [None]
  - PAIN [None]
  - ABORTION [None]
  - INJURY [None]
